FAERS Safety Report 14920583 (Version 1)
Quarter: 2018Q2

REPORT INFORMATION
  Report Type: Spontaneous
  Country: US (occurrence: US)
  Receive Date: 20180521
  Receipt Date: 20180521
  Transmission Date: 20180711
  Serious: Yes (Other)
  Sender: FDA-Public Use
  Company Number: US-SHIRE-US201819307

PATIENT
  Age: 58 Year
  Sex: Male

DRUGS (1)
  1. GATTEX [Suspect]
     Active Substance: TEDUGLUTIDE\WATER
     Indication: GASTRIC DISORDER
     Dosage: 3.96 MG, 1X/DAY:QD
     Route: 058
     Dates: start: 20180424, end: 20180514

REACTIONS (2)
  - Swelling face [Unknown]
  - Pulmonary oedema [Unknown]
